FAERS Safety Report 11863648 (Version 1)
Quarter: 2015Q4

REPORT INFORMATION
  Report Type: Spontaneous
  Country: US (occurrence: US)
  Receive Date: 20151223
  Receipt Date: 20151223
  Transmission Date: 20160305
  Serious: Yes (Hospitalization)
  Sender: FDA-Public Use
  Company Number: US-DSJP-DSU-2015-132304

PATIENT

DRUGS (2)
  1. BENICAR HCT [Suspect]
     Active Substance: HYDROCHLOROTHIAZIDE\OLMESARTAN MEDOXOMIL
     Indication: ATRIAL FIBRILLATION
  2. BENICAR HCT [Suspect]
     Active Substance: HYDROCHLOROTHIAZIDE\OLMESARTAN MEDOXOMIL
     Indication: HYPERTENSION
     Dosage: 40/ 25 MG, QD
     Route: 048
     Dates: start: 2011, end: 201408

REACTIONS (9)
  - Duodenitis [Unknown]
  - Off label use [Recovered/Resolved]
  - Diverticulitis [Unknown]
  - Haemorrhoids [Unknown]
  - Hiatus hernia [Unknown]
  - Renal impairment [Unknown]
  - Malabsorption [Recovered/Resolved]
  - Inflammatory bowel disease [Recovered/Resolved]
  - Gastritis [Unknown]

NARRATIVE: CASE EVENT DATE: 2011
